FAERS Safety Report 8153817-4 (Version None)
Quarter: 2012Q1

REPORT INFORMATION
  Report Type: 
  Country: None (occurrence: None)
  Receive Date: 20120221
  Receipt Date: 20120216
  Transmission Date: 20120608
  Serious: Yes (Hospitalization)
  Sender: FDA-Public Use
  Company Number: JP-GLAXOSMITHKLINE-B0782482A

PATIENT
  Sex: Female

DRUGS (5)
  1. LOXONIN [Concomitant]
     Indication: PAIN
     Route: 048
     Dates: start: 20120209
  2. MUCOSTA [Concomitant]
     Route: 048
     Dates: start: 20120209
  3. VALTREX [Suspect]
     Indication: HERPES ZOSTER
     Dosage: 3000MG PER DAY
     Route: 048
     Dates: start: 20120209
  4. ARASENA-A [Concomitant]
     Indication: HERPES ZOSTER
     Route: 061
     Dates: start: 20120209
  5. NIFESLOW [Concomitant]
     Indication: HYPERTENSION
     Route: 048

REACTIONS (3)
  - DIZZINESS POSTURAL [None]
  - RENAL FAILURE ACUTE [None]
  - ASTHENIA [None]
